FAERS Safety Report 8675945 (Version 2)
Quarter: 2012Q4

REPORT INFORMATION
  Report Type: Report from Study
  Country: JP (occurrence: JP)
  Receive Date: 20120720
  Receipt Date: 20121010
  Transmission Date: 20130627
  Serious: Yes (Other)
  Sender: FDA-Public Use
  Company Number: PHHY2012JP061733

PATIENT
  Age: 85 Year
  Sex: Male
  Weight: 44 kg

DRUGS (5)
  1. EXELON [Suspect]
     Indication: DEMENTIA ALZHEIMER^S TYPE
     Dosage: 4.5 mg,daily
     Route: 062
     Dates: start: 20111209, end: 20111230
  2. CONIEL [Concomitant]
     Indication: HYPERTENSION
     Dosage: 4 mg, UNK
     Route: 048
     Dates: end: 20111230
  3. VESICARE [Concomitant]
     Indication: BENIGN PROSTATIC HYPERPLASIA
     Dosage: 5 mg, UNK
     Route: 048
     Dates: end: 20111230
  4. HARNAL [Concomitant]
     Indication: BENIGN PROSTATIC HYPERPLASIA
     Dosage: 0.2 mg, UNK
     Route: 048
     Dates: end: 20111230
  5. FUROSEMIDE [Concomitant]
     Indication: CARDIAC FAILURE CONGESTIVE
     Dosage: 20 mg, UNK
     Route: 048
     Dates: end: 20111230

REACTIONS (3)
  - Chronic obstructive pulmonary disease [Unknown]
  - Acute myocardial infarction [Unknown]
  - Electrocardiogram ST-T change [Unknown]
